FAERS Safety Report 23191079 (Version 2)
Quarter: 2023Q4

REPORT INFORMATION
  Report Type: Spontaneous
  Country: US (occurrence: US)
  Receive Date: 20231116
  Receipt Date: 20231208
  Transmission Date: 20240109
  Serious: No
  Sender: FDA-Public Use
  Company Number: US-ABBVIE-5492905

PATIENT
  Sex: Female
  Weight: 86.183 kg

DRUGS (1)
  1. LATISSE [Suspect]
     Active Substance: BIMATOPROST
     Indication: Product used for unknown indication
     Dosage: FORM STRENGTH :  0.3MG/ML SOL
     Route: 047

REACTIONS (6)
  - Eye pruritus [Recovered/Resolved]
  - Swelling of eyelid [Recovered/Resolved]
  - Epistaxis [Unknown]
  - Ocular hyperaemia [Recovered/Resolved]
  - Erythema of eyelid [Recovered/Resolved]
  - Erythema [Unknown]
